FAERS Safety Report 23663677 (Version 4)
Quarter: 2025Q2

REPORT INFORMATION
  Report Type: Spontaneous
  Country: US (occurrence: US)
  Receive Date: 20240322
  Receipt Date: 20250603
  Transmission Date: 20250716
  Serious: Yes (Other)
  Sender: PFIZER
  Company Number: US-PFIZER INC-PV202300014941

PATIENT
  Age: 65 Year
  Sex: Female
  Weight: 99.79 kg

DRUGS (5)
  1. XELJANZ [Suspect]
     Active Substance: TOFACITINIB CITRATE
     Indication: Rheumatoid arthritis
     Dosage: 5 MG, 2X/DAY (60 TABLETS)
     Route: 048
  2. XELJANZ [Suspect]
     Active Substance: TOFACITINIB CITRATE
     Dosage: 5 MG, 1X/DAY (30 TABLETS)
     Route: 048
  3. XELJANZ [Suspect]
     Active Substance: TOFACITINIB CITRATE
     Dosage: 1 TABLET 2 TIMES A DAY FOR 30 DAYS
     Dates: end: 2022
  4. XELJANZ [Suspect]
     Active Substance: TOFACITINIB CITRATE
     Dosage: 5 MG, 2X/DAY
     Dates: end: 20250227
  5. XELJANZ [Suspect]
     Active Substance: TOFACITINIB CITRATE

REACTIONS (4)
  - Ureteral stent insertion [Unknown]
  - Colectomy [Unknown]
  - Vesical fistula [Unknown]
  - Off label use [Unknown]

NARRATIVE: CASE EVENT DATE: 20220301
